APPROVED DRUG PRODUCT: APREPITANT
Active Ingredient: APREPITANT
Strength: 80MG
Dosage Form/Route: CAPSULE;ORAL
Application: A090999 | Product #002 | TE Code: AB
Applicant: SANDOZ INC
Approved: Sep 24, 2012 | RLD: No | RS: No | Type: RX